FAERS Safety Report 9238123 (Version 1)
Quarter: 2013Q2

REPORT INFORMATION
  Report Type: Spontaneous
  Country: FR (occurrence: FR)
  Receive Date: 20130418
  Receipt Date: 20130418
  Transmission Date: 20140414
  Serious: Yes (Other)
  Sender: FDA-Public Use
  Company Number: PHHY2013FR036643

PATIENT
  Sex: Male

DRUGS (1)
  1. ONBREZ [Suspect]

REACTIONS (4)
  - Chest pain [Unknown]
  - Paraesthesia [Unknown]
  - Tachycardia [Unknown]
  - Muscle spasms [Unknown]
